FAERS Safety Report 23637974 (Version 4)
Quarter: 2024Q4

REPORT INFORMATION
  Report Type: Spontaneous
  Country: US (occurrence: US)
  Receive Date: 20240315
  Receipt Date: 20241008
  Transmission Date: 20250115
  Serious: No
  Sender: BLUEPRINT MEDICINES
  Company Number: US-Blueprint Medicines Corporation-2732

PATIENT
  Sex: Male

DRUGS (5)
  1. AYVAKIT [Suspect]
     Active Substance: AVAPRITINIB
     Indication: Gastric cancer
     Route: 065
     Dates: start: 20240118
  2. AYVAKIT [Suspect]
     Active Substance: AVAPRITINIB
     Route: 065
     Dates: start: 20240118
  3. AYVAKIT [Suspect]
     Active Substance: AVAPRITINIB
     Route: 065
     Dates: start: 20240118
  4. VITAMIN D [Concomitant]
     Active Substance: VITAMIN D NOS
     Indication: Vitamin supplementation
     Route: 065
  5. LISINOPRIL [Concomitant]
     Active Substance: LISINOPRIL
     Indication: Hypertension
     Route: 065

REACTIONS (9)
  - Swelling face [Unknown]
  - Periorbital swelling [Unknown]
  - Hypoaesthesia [Unknown]
  - Fluid retention [Unknown]
  - Pigmentation disorder [Unknown]
  - Lacrimation increased [Unknown]
  - Photosensitivity reaction [Unknown]
  - Vitamin D increased [Unknown]
  - Off label use [Unknown]
